FAERS Safety Report 19209955 (Version 1)
Quarter: 2021Q2

REPORT INFORMATION
  Report Type: Spontaneous
  Country: ME (occurrence: ME)
  Receive Date: 20210504
  Receipt Date: 20210504
  Transmission Date: 20210717
  Serious: Yes (Other)
  Sender: FDA-Public Use
  Company Number: ME-009507513-2104MNE008735

PATIENT
  Sex: Female
  Weight: 90 kg

DRUGS (1)
  1. KEYTRUDA [Suspect]
     Active Substance: PEMBROLIZUMAB
     Indication: LUNG NEOPLASM MALIGNANT
     Dosage: 100MG; 200MG
     Dates: start: 20180709, end: 20210128

REACTIONS (5)
  - Face oedema [Recovering/Resolving]
  - Fatigue [Unknown]
  - Generalised oedema [Recovering/Resolving]
  - Somnolence [Unknown]
  - Choking [Recovering/Resolving]

NARRATIVE: CASE EVENT DATE: 20210110
